FAERS Safety Report 20977804 (Version 3)
Quarter: 2022Q3

REPORT INFORMATION
  Report Type: Spontaneous
  Country: US (occurrence: US)
  Receive Date: 20220618
  Receipt Date: 20220702
  Transmission Date: 20221027
  Serious: No
  Sender: FDA-Public Use
  Company Number: US-UNITED THERAPEUTICS-UNT-2022-013258

PATIENT
  Age: 42 Year
  Sex: Female

DRUGS (3)
  1. TYVASO [Suspect]
     Active Substance: TREPROSTINIL
     Indication: Pulmonary arterial hypertension
     Dosage: UNK
     Dates: start: 202206
  2. TYVASO [Suspect]
     Active Substance: TREPROSTINIL
     Dosage: 18 ?G, QID
     Dates: start: 202206, end: 202206
  3. TYVASO [Suspect]
     Active Substance: TREPROSTINIL
     Dosage: 6 ?G, QID
     Dates: start: 202206

REACTIONS (8)
  - Arthralgia [Not Recovered/Not Resolved]
  - Headache [Not Recovered/Not Resolved]
  - Chest discomfort [Unknown]
  - Throat irritation [Unknown]
  - Nausea [Unknown]
  - Vomiting [Unknown]
  - Fatigue [Unknown]
  - Tremor [Unknown]

NARRATIVE: CASE EVENT DATE: 20220601
